FAERS Safety Report 20676872 (Version 1)
Quarter: 2022Q2

REPORT INFORMATION
  Report Type: Spontaneous
  Country: US (occurrence: US)
  Receive Date: 20220406
  Receipt Date: 20220406
  Transmission Date: 20220720
  Serious: No
  Sender: FDA-Public Use
  Company Number: US-GLAXOSMITHKLINE-US2022059414

PATIENT
  Sex: Female

DRUGS (1)
  1. ZEJULA [Suspect]
     Active Substance: NIRAPARIB
     Indication: Ovarian cancer
     Dosage: 200 MG, QD (PM)
     Dates: start: 20210423

REACTIONS (4)
  - Musculoskeletal stiffness [Unknown]
  - Muscle tightness [Unknown]
  - Arthralgia [Unknown]
  - Fatigue [Unknown]
